FAERS Safety Report 7520830-7 (Version None)
Quarter: 2011Q2

REPORT INFORMATION
  Report Type: 
  Country: None (occurrence: None)
  Receive Date: 20110603
  Receipt Date: 20100226
  Transmission Date: 20111010
  Serious: Yes (Death)
  Sender: FDA-Public Use
  Company Number: JP-BAYER-201010209BYL

PATIENT
  Age: 74 Year
  Sex: Male
  Weight: 57 kg

DRUGS (7)
  1. ETODOLAC [Concomitant]
     Indication: CANCER PAIN
     Dosage: 400 MG (DAILY DOSE), , ORAL
     Route: 048
     Dates: start: 20091224, end: 20100112
  2. FAMOTIDINE [Concomitant]
     Indication: CANCER PAIN
     Dosage: 40 MG (DAILY DOSE), , ORAL
     Route: 048
     Dates: start: 20091224, end: 20100112
  3. NEXAVAR [Suspect]
     Indication: HEPATIC NEOPLASM MALIGNANT
     Route: 048
     Dates: start: 20091224
  4. CANDESARTAN CILEXETIL [Concomitant]
     Indication: HYPERTENSION
     Dosage: 4 MG (DAILY DOSE), , ORAL
     Route: 048
     Dates: start: 20091224, end: 20100112
  5. LIVACT [Concomitant]
     Indication: HEPATIC CIRRHOSIS
     Dosage: 12.45 G (DAILY DOSE), , ORAL
     Route: 048
     Dates: start: 20060705, end: 20100112
  6. NEXAVAR [Suspect]
     Dosage: 400 MG (DAILY DOSE), , ORAL
     Route: 048
     Dates: start: 20100108, end: 20100112
  7. URSO 250 [Concomitant]
     Indication: HEPATITIS C
     Dosage: 600 MG (DAILY DOSE), , ORAL
     Route: 048
     Dates: start: 20060705, end: 20100112

REACTIONS (3)
  - HEPATIC FAILURE [None]
  - PALMAR-PLANTAR ERYTHRODYSAESTHESIA SYNDROME [None]
  - PLEURAL HAEMORRHAGE [None]
